FAERS Safety Report 21640003 (Version 2)
Quarter: 2023Q1

REPORT INFORMATION
  Report Type: Report from Study
  Country: AU (occurrence: AU)
  Receive Date: 20221124
  Receipt Date: 20230227
  Transmission Date: 20230418
  Serious: Yes (Other)
  Sender: FDA-Public Use
  Company Number: AU-ABBVIE-4211769

PATIENT
  Age: 64 Year
  Sex: Male
  Weight: 85 kg

DRUGS (21)
  1. UPADACITINIB [Suspect]
     Active Substance: UPADACITINIB
     Indication: Product used for unknown indication
     Route: 048
     Dates: start: 20220204
  2. PANTOPRAZOLE [Concomitant]
     Active Substance: PANTOPRAZOLE
     Indication: Barrett^s oesophagus
     Route: 048
     Dates: start: 20211220
  3. Ultrabiotic [Concomitant]
     Indication: Product used for unknown indication
     Dates: start: 201904
  4. Ultrabiotic [Concomitant]
     Indication: Product used for unknown indication
     Dates: start: 201902
  5. Ultrabiotic [Concomitant]
     Indication: Product used for unknown indication
     Dates: start: 201902
  6. Ultrabiotic [Concomitant]
     Indication: Product used for unknown indication
     Dates: start: 201904
  7. Influenza virus vaccine, /old form/ [Concomitant]
     Indication: Product used for unknown indication
     Dates: start: 20220412
  8. Influenza virus vaccine, /old form/ [Concomitant]
     Indication: Product used for unknown indication
     Dates: start: 20210526
  9. Influenza virus vaccine, /old form/ [Concomitant]
     Indication: Product used for unknown indication
     Dates: start: 20210526
  10. Influenza virus vaccine, /old form/ [Concomitant]
     Indication: Product used for unknown indication
     Dates: start: 20220412
  11. JANSSEN COVID-19 VACCINE [Concomitant]
     Active Substance: AD26.COV2.S
     Indication: Severe acute respiratory syndrome
     Dates: start: 20210804, end: 20210804
  12. JANSSEN COVID-19 VACCINE [Concomitant]
     Active Substance: AD26.COV2.S
     Indication: Severe acute respiratory syndrome
     Dates: start: 20220831, end: 20220831
  13. JANSSEN COVID-19 VACCINE [Concomitant]
     Active Substance: AD26.COV2.S
     Indication: Severe acute respiratory syndrome
     Dates: start: 20220207, end: 20220207
  14. JANSSEN COVID-19 VACCINE [Concomitant]
     Active Substance: AD26.COV2.S
     Indication: Severe acute respiratory syndrome
     Dates: start: 20210929, end: 20210929
  15. JANSSEN COVID-19 VACCINE [Concomitant]
     Active Substance: AD26.COV2.S
     Indication: Severe acute respiratory syndrome
     Dates: start: 20220831, end: 20220831
  16. JANSSEN COVID-19 VACCINE [Concomitant]
     Active Substance: AD26.COV2.S
     Indication: Severe acute respiratory syndrome
     Dates: start: 20210804, end: 20210804
  17. JANSSEN COVID-19 VACCINE [Concomitant]
     Active Substance: AD26.COV2.S
     Indication: Severe acute respiratory syndrome
     Dates: start: 20210929, end: 20210929
  18. JANSSEN COVID-19 VACCINE [Concomitant]
     Active Substance: AD26.COV2.S
     Indication: Severe acute respiratory syndrome
     Dates: start: 20220207, end: 20220207
  19. PREDNISONE [Concomitant]
     Active Substance: PREDNISONE
     Indication: Product used for unknown indication
     Dosage: 5 MILLIGRAM
     Route: 048
     Dates: start: 202110, end: 20220216
  20. PREDNISONE [Concomitant]
     Active Substance: PREDNISONE
     Indication: Product used for unknown indication
     Route: 048
     Dates: start: 201803, end: 201906
  21. PREDNISONE [Concomitant]
     Active Substance: PREDNISONE
     Indication: Product used for unknown indication
     Dates: start: 201803, end: 201906

REACTIONS (1)
  - Squamous cell carcinoma of skin [Recovered/Resolved]

NARRATIVE: CASE EVENT DATE: 20220910
